FAERS Safety Report 10924588 (Version 2)
Quarter: 2015Q2

REPORT INFORMATION
  Report Type: Spontaneous
  Country: US (occurrence: US)
  Receive Date: 20150318
  Receipt Date: 20150524
  Transmission Date: 20150821
  Serious: No
  Sender: FDA-Public Use
  Company Number: US-JNJFOC-20121209530

PATIENT
  Age: 55 Year
  Sex: Male
  Weight: 68.04 kg

DRUGS (5)
  1. NIZORAL A-D [Suspect]
     Active Substance: KETOCONAZOLE
     Indication: DANDRUFF
     Dosage: APPLIED LIBERALLY, EVERY OTHER SHOWER
     Route: 061
  2. UNSPECIFIED SHAMPOO [Suspect]
     Active Substance: UNSPECIFIED INGREDIENT
     Indication: PRODUCT USED FOR UNKNOWN INDICATION
     Route: 065
  3. KLONOPIN [Concomitant]
     Active Substance: CLONAZEPAM
     Indication: PANIC ATTACK
     Dosage: 1.5 /1 TIME
     Route: 065
     Dates: start: 20120630
  4. NIZORAL A-D [Suspect]
     Active Substance: KETOCONAZOLE
     Route: 061
  5. ANTI-ANXIETY MEDICATION [Concomitant]
     Active Substance: UNSPECIFIED INGREDIENT
     Indication: ANXIETY
     Route: 065

REACTIONS (3)
  - Therapeutic response decreased [Recovered/Resolved]
  - Heart rate increased [Unknown]
  - Inappropriate schedule of drug administration [Unknown]

NARRATIVE: CASE EVENT DATE: 20120930
